FAERS Safety Report 7206190-X (Version None)
Quarter: 2011Q1

REPORT INFORMATION
  Report Type: 
  Country: None (occurrence: None)
  Receive Date: 20110103
  Receipt Date: 20101220
  Transmission Date: 20110831
  Serious: Yes (Other)
  Sender: FDA-Public Use
  Company Number: DE-JNJFOC-20101208794

PATIENT
  Sex: Male

DRUGS (2)
  1. PALEXIA RETARD [Suspect]
     Route: 048
  2. PALEXIA RETARD [Suspect]
     Indication: PRODUCT USED FOR UNKNOWN INDICATION
     Route: 048

REACTIONS (3)
  - DYSPNOEA [None]
  - ANGINA PECTORIS [None]
  - CHEST DISCOMFORT [None]
